FAERS Safety Report 13968378 (Version 2)
Quarter: 2018Q3

REPORT INFORMATION
  Report Type: Spontaneous
  Country: US (occurrence: US)
  Receive Date: 20170914
  Receipt Date: 20180813
  Transmission Date: 20181010
  Serious: Yes (Life-Threatening, Hospitalization)
  Sender: FDA-Public Use
  Company Number: US-MYLANLABS-2017M1056491

PATIENT
  Age: 40 Year
  Sex: Female

DRUGS (2)
  1. CIMETIDINE [Interacting]
     Active Substance: CIMETIDINE
     Indication: PRODUCT USED FOR UNKNOWN INDICATION
     Dosage: ONE EMPTY BOTTLE OF CIMETIDINE
     Route: 048
  2. LOPERAMIDE [Suspect]
     Active Substance: LOPERAMIDE
     Indication: PRODUCT USED FOR UNKNOWN INDICATION
     Dosage: HIGH DOSE, TEN EMPTY BOTTLES OF LOPERAMIDE
     Route: 048

REACTIONS (11)
  - Syncope [Unknown]
  - Torsade de pointes [Recovering/Resolving]
  - Drug abuse [Recovering/Resolving]
  - Drug interaction [Recovering/Resolving]
  - Cardiac arrest [Recovering/Resolving]
  - Arrhythmia [Recovered/Resolved]
  - Toxicity to various agents [Recovering/Resolving]
  - Overdose [Recovering/Resolving]
  - Mental status changes [Unknown]
  - Urinary incontinence [Unknown]
  - Ventricular tachycardia [Recovering/Resolving]
